FAERS Safety Report 15706084 (Version 1)
Quarter: 2018Q4

REPORT INFORMATION
  Report Type: Spontaneous
  Country: SE (occurrence: SE)
  Receive Date: 20181210
  Receipt Date: 20181210
  Transmission Date: 20190205
  Serious: Yes (Other)
  Sender: FDA-Public Use
  Company Number: SE-TEVA-2018-SE-984407

PATIENT
  Age: 67 Year
  Sex: Female

DRUGS (15)
  1. PLENDIL [Concomitant]
     Active Substance: FELODIPINE
  2. ZOLPIDEM [Concomitant]
     Active Substance: ZOLPIDEM\ZOLPIDEM TARTRATE
  3. CYMBALTA [Concomitant]
     Active Substance: DULOXETINE HYDROCHLORIDE
     Dosage: ENTEROCAPEL, HARD
  4. ISOPHANE INSULIN [Concomitant]
     Active Substance: INSULIN NOS
  5. LOSARTAN/HYDROCHLOROTHIAZIDE KRKA [Concomitant]
  6. GABAPENTIN. [Suspect]
     Active Substance: GABAPENTIN
     Indication: PAIN
     Dosage: 600 MILLIGRAM DAILY;
     Route: 048
     Dates: start: 20140104, end: 20140107
  7. DICLOFENAC [Concomitant]
     Active Substance: DICLOFENAC
  8. METFORMIN [Concomitant]
     Active Substance: METFORMIN HYDROCHLORIDE
  9. METOPROLOL SANDOZ [Concomitant]
     Active Substance: METOPROLOL
  10. MIANSERIN MYLAN [Concomitant]
     Active Substance: MIANSERIN
  11. SOBRIL [Concomitant]
     Active Substance: OXAZEPAM
  12. MORPHINE [Concomitant]
     Active Substance: MORPHINE
  13. LEVAXIN [Concomitant]
     Active Substance: LEVOTHYROXINE SODIUM
  14. DOLCONTIN [Concomitant]
     Active Substance: MORPHINE
  15. SIMVASTATIN SANDOZ [Concomitant]
     Active Substance: SIMVASTATIN

REACTIONS (1)
  - Communication disorder [Recovered/Resolved]

NARRATIVE: CASE EVENT DATE: 20140107
